FAERS Safety Report 20802487 (Version 1)
Quarter: 2022Q2

REPORT INFORMATION
  Report Type: Spontaneous
  Country: US (occurrence: None)
  Receive Date: 20220509
  Receipt Date: 20220509
  Transmission Date: 20220721
  Serious: Yes (Hospitalization)
  Sender: FDA-Public Use
  Company Number: None

PATIENT
  Age: 82 Year
  Sex: Male

DRUGS (1)
  1. BORTEZOMIB [Suspect]
     Active Substance: BORTEZOMIB
     Indication: Plasma cell myeloma
     Dosage: FREQUENCY : WEEKLY;?
     Route: 042
     Dates: start: 20190901, end: 20210720

REACTIONS (10)
  - Dyspnoea [None]
  - Cough [None]
  - Acute respiratory failure [None]
  - Interstitial lung disease [None]
  - Atypical pneumonia [None]
  - Streptococcus test positive [None]
  - White blood cell count increased [None]
  - Opportunistic infection [None]
  - Respiratory depression [None]
  - Wheezing [None]

NARRATIVE: CASE EVENT DATE: 20210706
